FAERS Safety Report 7035720-6 (Version None)
Quarter: 2010Q4

REPORT INFORMATION
  Report Type: 
  Country: None (occurrence: None)
  Receive Date: 20101008
  Receipt Date: 20101005
  Transmission Date: 20110411
  Serious: Yes (Hospitalization)
  Sender: FDA-Public Use
  Company Number: FR-BRISTOL-MYERS SQUIBB COMPANY-15322639

PATIENT
  Age: 80 Year
  Sex: Male

DRUGS (3)
  1. VIDEX [Suspect]
     Indication: HIV INFECTION
     Dosage: 3 DAYS/WEEK; THEN 2DAYS/WEEK FROM MAR2010; START DATE: APR/MAY2009.
     Dates: start: 20090101
  2. TRUVADA [Suspect]
     Indication: HIV INFECTION
     Dosage: 3 DAYS/WEEK; THEN 2DAYS/WEEK FROM MAR2010.
     Dates: start: 20040101
  3. VIRAMUNE [Suspect]
     Indication: HIV INFECTION
     Dosage: 3 DAYS/WEEK; THEN 2DAYS/WEEK FROM MAR2010.
     Dates: start: 20090101

REACTIONS (2)
  - ATRIAL FIBRILLATION [None]
  - CEREBROVASCULAR ACCIDENT [None]
